FAERS Safety Report 9290724 (Version 1)
Quarter: 2013Q2

REPORT INFORMATION
  Report Type: Spontaneous
  Country: BR (occurrence: BR)
  Receive Date: 20130515
  Receipt Date: 20130515
  Transmission Date: 20140414
  Serious: Yes (Other)
  Sender: FDA-Public Use
  Company Number: PHHY2013BR048324

PATIENT
  Sex: Female
  Weight: 95.5 kg

DRUGS (7)
  1. DIOVAN [Suspect]
     Dosage: 1 UKN, DAILY
  2. NATRILIX [Concomitant]
     Indication: HYPERTENSION
     Dosage: 1 DF, DAILY
     Route: 048
  3. VERAPAMIL [Concomitant]
     Indication: HYPERTENSION
     Dosage: 240 MG, DAILY
     Route: 048
  4. NPH INSULIN [Concomitant]
     Indication: DIABETES MELLITUS
     Dosage: 50 U, DAILY
     Route: 058
  5. REGULAR INSULIN NOVO NORDISK [Concomitant]
     Indication: DIABETES MELLITUS
     Dosage: 7 U, DAILY
     Route: 058
  6. METFORMIN [Concomitant]
     Indication: DIABETES MELLITUS
     Dosage: 3 DF, DAILY
     Route: 048
  7. HYDROXYUREA [Concomitant]
     Indication: THROMBOSIS
     Dosage: 3 DF, DAILY
     Route: 048

REACTIONS (2)
  - Petit mal epilepsy [Recovered/Resolved]
  - Glaucoma [Recovering/Resolving]
